FAERS Safety Report 10271617 (Version 3)
Quarter: 2015Q3

REPORT INFORMATION
  Report Type: Spontaneous
  Country: US (occurrence: US)
  Receive Date: 20140701
  Receipt Date: 20150817
  Transmission Date: 20151125
  Serious: No
  Sender: FDA-Public Use
  Company Number: US-GILEAD-2014-0107187

PATIENT
  Age: 42 Year
  Sex: Female

DRUGS (3)
  1. ADCIRCA [Concomitant]
     Active Substance: TADALAFIL
  2. REMODULIN [Concomitant]
     Active Substance: TREPROSTINIL
     Dosage: UNK
     Dates: start: 20140620
  3. LETAIRIS [Suspect]
     Active Substance: AMBRISENTAN
     Indication: PRODUCT USED FOR UNKNOWN INDICATION
     Dosage: 10 MG, QD
     Route: 065
     Dates: start: 20121211

REACTIONS (6)
  - Fatigue [Unknown]
  - Diarrhoea [Unknown]
  - Dizziness [Unknown]
  - Dyspnoea [Unknown]
  - No therapeutic response [Unknown]
  - Dyspnoea exertional [Unknown]
